FAERS Safety Report 11755350 (Version 1)
Quarter: 2015Q4

REPORT INFORMATION
  Report Type: Spontaneous
  Country: FR (occurrence: FR)
  Receive Date: 20151119
  Receipt Date: 20151119
  Transmission Date: 20160304
  Serious: Yes (Other)
  Sender: FDA-Public Use
  Company Number: PHHY2015FR151766

PATIENT
  Age: 7 Year
  Sex: Female
  Weight: 29 kg

DRUGS (2)
  1. RITALINE LP [Suspect]
     Active Substance: METHYLPHENIDATE HYDROCHLORIDE
     Dosage: 2 DF (TWO CAPSULES), ONCE/SINGLE (IN THE MORNING)
     Route: 048
     Dates: start: 20150915
  2. RITALINE LP [Suspect]
     Active Substance: METHYLPHENIDATE HYDROCHLORIDE
     Indication: PRODUCT USED FOR UNKNOWN INDICATION
     Dosage: 1 DF (ONE CAPSULE), QD
     Route: 048

REACTIONS (4)
  - Pain [Unknown]
  - Headache [Unknown]
  - Incorrect dose administered [Recovered/Resolved]
  - Medication error [Recovered/Resolved]

NARRATIVE: CASE EVENT DATE: 20150915
